FAERS Safety Report 24164449 (Version 1)
Quarter: 2024Q3

REPORT INFORMATION
  Report Type: Report from Study
  Country: CA (occurrence: CA)
  Receive Date: 20240801
  Receipt Date: 20240801
  Transmission Date: 20241017
  Serious: Yes (Life-Threatening, Other)
  Sender: EMD SERONO INC
  Company Number: CA-Merck Healthcare KGaA-2024041140

PATIENT
  Sex: Male

DRUGS (1)
  1. SAIZEN [Suspect]
     Active Substance: SOMATROPIN
     Indication: Growth hormone deficiency
     Route: 058
     Dates: start: 20160715

REACTIONS (2)
  - Cardiac arrest [Unknown]
  - COVID-19 pneumonia [Unknown]
